APPROVED DRUG PRODUCT: LAMIVUDINE
Active Ingredient: LAMIVUDINE
Strength: 300MG
Dosage Form/Route: TABLET;ORAL
Application: A090457 | Product #002 | TE Code: AB
Applicant: STRIDES PHARMA GLOBAL PTE LTD
Approved: Apr 19, 2018 | RLD: No | RS: No | Type: RX